FAERS Safety Report 7885261-9 (Version None)
Quarter: 2011Q4

REPORT INFORMATION
  Report Type: 
  Country: None (occurrence: None)
  Receive Date: 20111102
  Receipt Date: 20111025
  Transmission Date: 20120403
  Serious: Yes (Other)
  Sender: FDA-Public Use
  Company Number: CHPA2011AR14801

PATIENT
  Age: 32 Year
  Sex: Male

DRUGS (1)
  1. NICOTINE [Suspect]
     Indication: SMOKING CESSATION THERAPY
     Dosage: 4 MG, BID

REACTIONS (2)
  - FEELING OF DESPAIR [None]
  - THROAT TIGHTNESS [None]
